FAERS Safety Report 10708268 (Version 3)
Quarter: 2015Q3

REPORT INFORMATION
  Report Type: Report from Study
  Country: BO (occurrence: BO)
  Receive Date: 20150113
  Receipt Date: 20150709
  Transmission Date: 20151125
  Serious: Yes (Death, Other)
  Sender: FDA-Public Use
  Company Number: PHHY2015BO003001

PATIENT
  Age: 67 Year
  Sex: Male

DRUGS (1)
  1. GLIVEC [Suspect]
     Active Substance: IMATINIB MESYLATE
     Indication: GASTROINTESTINAL STROMAL TUMOUR
     Dosage: 400 MG, QD
     Route: 048
     Dates: end: 2014

REACTIONS (5)
  - Abdominal neoplasm [Unknown]
  - Death [Fatal]
  - Gastrointestinal stromal tumour [Unknown]
  - Metastases to liver [Unknown]
  - Recurrent cancer [Unknown]

NARRATIVE: CASE EVENT DATE: 201411
